FAERS Safety Report 9744351 (Version 1)
Quarter: 2013Q4

REPORT INFORMATION
  Report Type: Spontaneous
  Country: IR (occurrence: IR)
  Receive Date: 20131210
  Receipt Date: 20131210
  Transmission Date: 20140711
  Serious: Yes (Hospitalization)
  Sender: FDA-Public Use
  Company Number: IR-MYLANLABS-2013S1027138

PATIENT
  Age: 65 Year
  Sex: Female

DRUGS (4)
  1. ATORVASTATIN [Suspect]
     Indication: HYPERLIPIDAEMIA
     Dosage: 40MG DAILY
     Route: 065
  2. ATORVASTATIN [Interacting]
     Indication: MYOCARDIAL ISCHAEMIA
     Dosage: 40MG DAILY
     Route: 065
  3. INSULIN ISOPHANE [Concomitant]
     Indication: TYPE 2 DIABETES MELLITUS
     Dosage: INSULIN SUSPENSION ISOPHANE
     Route: 065
  4. ASPIRIN [Concomitant]
     Dosage: 80MG DAILY
     Route: 065

REACTIONS (5)
  - Rhabdomyolysis [Recovering/Resolving]
  - Renal failure acute [Recovered/Resolved]
  - Drug interaction [Recovering/Resolving]
  - Hyperkalaemia [Recovered/Resolved]
  - Metabolic acidosis [Recovered/Resolved]
